FAERS Safety Report 25788057 (Version 1)
Quarter: 2025Q3

REPORT INFORMATION
  Report Type: Spontaneous
  Country: CN (occurrence: CN)
  Receive Date: 20250910
  Receipt Date: 20250910
  Transmission Date: 20251020
  Serious: Yes (Other)
  Sender: AMERICAN REGENT
  Company Number: CN-AMERICAN REGENT INC-2025003390

PATIENT
  Age: 42 Year
  Sex: Female
  Weight: 67 kg

DRUGS (1)
  1. FERINJECT [Suspect]
     Active Substance: FERRIC CARBOXYMALTOSE
     Indication: Mineral supplementation
     Route: 041
     Dates: start: 20250806, end: 20250806

REACTIONS (4)
  - Body temperature fluctuation [Recovered/Resolved]
  - Pyrexia [Recovered/Resolved]
  - Heart rate increased [Unknown]
  - Product use issue [Unknown]

NARRATIVE: CASE EVENT DATE: 20250806
